FAERS Safety Report 9631810 (Version 1)
Quarter: 2013Q4

REPORT INFORMATION
  Report Type: Spontaneous
  Country: BR (occurrence: None)
  Receive Date: 20131016
  Receipt Date: 20131016
  Transmission Date: 20140711
  Serious: Yes (Hospitalization, Other)
  Sender: FDA-Public Use
  Company Number: DSJ-2013-22241

PATIENT
  Age: 60 Year
  Sex: Male

DRUGS (1)
  1. BENICAR ANLO [Suspect]
     Indication: HYPERTENSION
     Route: 048
     Dates: start: 201307, end: 201308

REACTIONS (3)
  - Cholecystectomy [None]
  - Hypotension [None]
  - Syncope [None]
